FAERS Safety Report 10503643 (Version 1)
Quarter: 2014Q4

REPORT INFORMATION
  Report Type: Spontaneous
  Country: US (occurrence: None)
  Receive Date: 20141007
  Receipt Date: 20141007
  Transmission Date: 20150528
  Serious: Yes (Death, Hospitalization)
  Sender: FDA-Public Use
  Company Number: None

PATIENT
  Age: 61 Year
  Sex: Male
  Weight: 58.97 kg

DRUGS (1)
  1. SERTRALINE [Suspect]
     Active Substance: SERTRALINE HYDROCHLORIDE
     Indication: DEPRESSION
     Dosage: 50 MG, EVERY DAY, PO
     Route: 048
     Dates: start: 20140530, end: 20140901

REACTIONS (10)
  - Liver function test abnormal [None]
  - Ascites [None]
  - Blood urea increased [None]
  - Jaundice [None]
  - Abdominal pain [None]
  - Hyponatraemia [None]
  - Hepatic cirrhosis [None]
  - Confusional state [None]
  - Blood creatinine increased [None]
  - International normalised ratio abnormal [None]

NARRATIVE: CASE EVENT DATE: 20140925
